FAERS Safety Report 11705558 (Version 3)
Quarter: 2016Q3

REPORT INFORMATION
  Report Type: Spontaneous
  Country: BR (occurrence: BR)
  Receive Date: 20151106
  Receipt Date: 20160713
  Transmission Date: 20161109
  Serious: Yes (Other)
  Sender: FDA-Public Use
  Company Number: BR-JNJFOC-20151106258

PATIENT
  Sex: Male

DRUGS (4)
  1. METREXATO [Suspect]
     Active Substance: METHOTREXATE SODIUM
     Indication: PRODUCT USED FOR UNKNOWN INDICATION
     Route: 065
  2. SIMPONI [Suspect]
     Active Substance: GOLIMUMAB
     Indication: RHEUMATOID ARTHRITIS
     Route: 058
     Dates: start: 20140630
  3. SULPHASALAZINE [Suspect]
     Active Substance: SULFASALAZINE
     Indication: PRODUCT USED FOR UNKNOWN INDICATION
     Route: 065
  4. TRAMAL [Concomitant]
     Active Substance: TRAMADOL
     Route: 065

REACTIONS (8)
  - Polyp [Unknown]
  - Influenza [Unknown]
  - Gastritis bacterial [Unknown]
  - Inflammation [Unknown]
  - Liver disorder [Unknown]
  - Rhinitis allergic [Unknown]
  - Hepatic steatosis [Unknown]
  - Lipoma [Unknown]
